FAERS Safety Report 15753642 (Version 3)
Quarter: 2019Q1

REPORT INFORMATION
  Report Type: Spontaneous
  Country: US (occurrence: US)
  Receive Date: 20181222
  Receipt Date: 20190111
  Transmission Date: 20190417
  Serious: No
  Sender: FDA-Public Use
  Company Number: US-B.I. PHARMACEUTICALS,INC./RIDGEFIELD-2018-BI-060683

PATIENT
  Sex: Male

DRUGS (1)
  1. SPIRIVA [Suspect]
     Active Substance: TIOTROPIUM BROMIDE MONOHYDRATE
     Indication: LUNG OPERATION
     Route: 055

REACTIONS (4)
  - Off label use [Unknown]
  - Overdose [Unknown]
  - Product quality issue [Unknown]
  - Intentional overdose [Not Recovered/Not Resolved]
